APPROVED DRUG PRODUCT: DOXEPIN HYDROCHLORIDE
Active Ingredient: DOXEPIN HYDROCHLORIDE
Strength: EQ 3MG BASE
Dosage Form/Route: TABLET;ORAL
Application: A202761 | Product #001 | TE Code: AB
Applicant: ZYDUS LIFESCIENCES LTD
Approved: Aug 16, 2023 | RLD: No | RS: No | Type: RX